FAERS Safety Report 5881890-2 (Version None)
Quarter: 2008Q3

REPORT INFORMATION
  Report Type: 
  Country: None (occurrence: None)
  Receive Date: 20080912
  Receipt Date: 20080805
  Transmission Date: 20090109
  Serious: No
  Sender: FDA-Public Use
  Company Number: US-ABBOTT-08P-163-0464144-00

PATIENT
  Sex: Female
  Weight: 57.658 kg

DRUGS (7)
  1. HUMIRA [Suspect]
     Indication: PSORIASIS
     Route: 058
     Dates: start: 20080301
  2. HUMIRA [Suspect]
     Indication: PSORIATIC ARTHROPATHY
  3. OXYCODONE HCL [Concomitant]
     Indication: PAIN
     Route: 048
  4. OMEPRAZOLE MAGNESIUM [Concomitant]
     Indication: DYSPEPSIA
     Route: 048
  5. ZOLPIDEM TARTRATE [Concomitant]
     Indication: INSOMNIA
     Route: 048
  6. CLONAZEPAM [Concomitant]
     Indication: INSOMNIA
     Route: 048
  7. MILK THISTLE [Concomitant]
     Indication: DRUG USE FOR UNKNOWN INDICATION
     Route: 048

REACTIONS (2)
  - JOINT SWELLING [None]
  - MALAISE [None]
